FAERS Safety Report 5418317-0 (Version None)
Quarter: 2007Q3

REPORT INFORMATION
  Report Type: 
  Country: None (occurrence: None)
  Receive Date: 20070817
  Receipt Date: 20070815
  Transmission Date: 20080115
  Serious: Yes (Death, Life-Threatening, Hospitalization, Other)
  Sender: FDA-Public Use
  Company Number: AT-BRISTOL-MYERS SQUIBB COMPANY-12491437

PATIENT
  Age: 62 Year
  Sex: Female
  Weight: 71 kg

DRUGS (7)
  1. CETUXIMAB [Suspect]
     Indication: COLORECTAL CANCER
     Dosage: DISCONTINUED 22-JAN-04
     Route: 041
     Dates: start: 20031202, end: 20040116
  2. IRINOTECAN HCL [Suspect]
     Indication: COLORECTAL CANCER
     Dosage: DISCONTINUED 22-JAN-04
     Route: 042
     Dates: start: 20031202, end: 20040116
  3. ARIMIDEX [Suspect]
  4. CEFPODOXIME PROXETIL [Concomitant]
  5. HYDROMORPHONE HCL [Concomitant]
  6. INSULIN HUMAN + ISOPHANE INSULIN HUMAN [Concomitant]
  7. NOZINAN [Concomitant]

REACTIONS (9)
  - ANAEMIA [None]
  - AZOTAEMIA [None]
  - COLORECTAL CANCER METASTATIC [None]
  - EXCORIATION [None]
  - GASTROINTESTINAL HYPOMOTILITY [None]
  - HAEMATOCHEZIA [None]
  - LEUKOPENIA [None]
  - PARAESTHESIA [None]
  - RASH [None]
